FAERS Safety Report 6205398-X (Version None)
Quarter: 2009Q2

REPORT INFORMATION
  Report Type: 
  Country: None (occurrence: None)
  Receive Date: 20090527
  Receipt Date: 20090317
  Transmission Date: 20091009
  Serious: No
  Sender: FDA-Public Use
  Company Number: US-ABBOTT-09P-163-0563000-00

PATIENT
  Sex: Male

DRUGS (9)
  1. SIMCOR [Suspect]
     Indication: BLOOD CHOLESTEROL ABNORMAL
     Dosage: 1000/20 MG EVERY NIGHT
  2. ASPIRIN [Concomitant]
     Indication: DRUG USE FOR UNKNOWN INDICATION
  3. AVANDAMET [Concomitant]
     Indication: DRUG USE FOR UNKNOWN INDICATION
  4. PRILOSEC [Concomitant]
     Indication: DRUG USE FOR UNKNOWN INDICATION
  5. FLOMAX [Concomitant]
     Indication: DRUG USE FOR UNKNOWN INDICATION
  6. AVAGARD [Concomitant]
     Indication: DRUG USE FOR UNKNOWN INDICATION
  7. ANASTROZOLE/CHRYSIN [Concomitant]
     Indication: DRUG USE FOR UNKNOWN INDICATION
  8. CIALIS [Concomitant]
     Indication: ERECTILE DYSFUNCTION
  9. NOT REPORTED MED [Concomitant]
     Indication: ERECTILE DYSFUNCTION

REACTIONS (2)
  - FLUSHING [None]
  - PARAESTHESIA [None]
